FAERS Safety Report 9034675 (Version 1)
Quarter: 2013Q1

REPORT INFORMATION
  Report Type: Spontaneous
  Country: GB (occurrence: None)
  Receive Date: 20130115
  Receipt Date: 20130115
  Transmission Date: 20140127
  Serious: Yes (Life-Threatening, Hospitalization)
  Sender: FDA-Public Use
  Company Number: GER/UKI/13/0027400

PATIENT
  Age: 50 Year
  Sex: Male
  Weight: 60 kg

DRUGS (3)
  1. QUETIAPINE (QUETIAPINE) (QUETIAPINE) [Suspect]
     Indication: DEPRESSION
     Route: 048
  2. AGOMELATINE [Suspect]
     Indication: DEPRESSION
     Route: 048
  3. VENLAFAXINE (VENLAFAXINE) [Suspect]
     Indication: DEPRESSION
     Route: 048

REACTIONS (2)
  - Inappropriate antidiuretic hormone secretion [None]
  - Fall [None]
